FAERS Safety Report 6991376-X (Version None)
Quarter: 2010Q3

REPORT INFORMATION
  Report Type: 
  Country: None (occurrence: None)
  Receive Date: 20100916
  Receipt Date: 20090917
  Transmission Date: 20110219
  Serious: No
  Sender: FDA-Public Use
  Company Number: US-WYE-H10595909

PATIENT
  Age: 60 Year
  Sex: Female
  Weight: 57.2 kg

DRUGS (2)
  1. ADVIL PM [Suspect]
     Indication: BACK PAIN
     Route: 048
     Dates: start: 20090701, end: 20090701
  2. ADVIL PM [Suspect]
     Dosage: UNKNOWN
     Route: 048
     Dates: start: 20090701

REACTIONS (3)
  - DRUG EFFECT DECREASED [None]
  - FEELING ABNORMAL [None]
  - RESTLESSNESS [None]
